FAERS Safety Report 15400355 (Version 7)
Quarter: 2019Q4

REPORT INFORMATION
  Report Type: Report from Study
  Country: JP (occurrence: JP)
  Receive Date: 20180919
  Receipt Date: 20191001
  Transmission Date: 20200122
  Serious: Yes (Life-Threatening, Hospitalization, Disabling, Other)
  Sender: FDA-Public Use
  Company Number: JP-ALXN-A201802742AA

PATIENT

DRUGS (3)
  1. STRENSIQ [Suspect]
     Active Substance: ASFOTASE ALFA
     Indication: HYPOPHOSPHATASIA
     Dosage: 2 MG/KG, TIW
     Route: 058
     Dates: start: 20161017, end: 20180928
  2. CLAFORAN [Concomitant]
     Active Substance: CEFOTAXIME SODIUM
     Indication: PNEUMONIA
     Dosage: 120 MG, TID
     Route: 042
     Dates: start: 20171120, end: 20171130
  3. INCREMIN                           /00023544/ [Concomitant]
     Indication: PROPHYLAXIS
     Dosage: 4 ML, BID
     Route: 048
     Dates: start: 20170514

REACTIONS (5)
  - Febrile convulsion [Unknown]
  - Pyrexia [Recovered/Resolved]
  - Tooth loss [Not Recovered/Not Resolved]
  - Encephalopathy [Not Recovered/Not Resolved]
  - Tooth hypoplasia [Not Recovered/Not Resolved]

NARRATIVE: CASE EVENT DATE: 201802
